FAERS Safety Report 7607921-7 (Version None)
Quarter: 2011Q3

REPORT INFORMATION
  Report Type: 
  Country: None (occurrence: None)
  Receive Date: 20110714
  Receipt Date: 20090316
  Transmission Date: 20111222
  Serious: Yes (Death, Hospitalization, Other)
  Sender: FDA-Public Use
  Company Number: US-BAYER-200915499NA

PATIENT
  Age: 59 Year
  Sex: Male
  Weight: 84 kg

DRUGS (21)
  1. TRASYLOL [Suspect]
     Indication: CORONARY ARTERY BYPASS
     Dosage: 200 ML,PRIME SOLUTION
     Route: 042
     Dates: start: 19980415, end: 19980415
  2. MORPHINE [Concomitant]
     Dosage: UNK
     Route: 042
     Dates: start: 19980415
  3. SUFENTA PRESERVATIVE FREE [Concomitant]
     Dosage: UNK
     Route: 042
     Dates: start: 19980415, end: 19980415
  4. CONTRAST MEDIA [Concomitant]
  5. SODIUM NITROPRUSSIDE [Concomitant]
     Dosage: UNK
     Dates: start: 19980415
  6. PAVULON [Concomitant]
     Dosage: UNK
     Route: 042
     Dates: start: 19980415
  7. PROSTIGMIN BROMIDE [Concomitant]
     Dosage: UNK
     Route: 042
     Dates: start: 19980415, end: 19980415
  8. NIZATIDINE [Concomitant]
     Dosage: 150 MG/24HR, UNK
     Route: 048
     Dates: start: 19970201
  9. LIPITOR [Concomitant]
     Dosage: 10 MG/24HR, UNK
     Route: 048
  10. DIAZEPAM [Concomitant]
     Dosage: UNK
     Route: 042
     Dates: start: 19980415
  11. DOPAMINE HCL [Concomitant]
     Dosage: UNK
     Route: 042
     Dates: start: 19980415
  12. CONTRAST MEDIA [Concomitant]
     Indication: CATHETERISATION CARDIAC
     Dosage: UNK
     Dates: start: 19980410
  13. ACETYLSALICYLIC ACID SRT [Concomitant]
     Dosage: 325 MG/24HR, UNK
     Route: 048
  14. ZEMURON [Concomitant]
     Dosage: UNK
     Route: 042
     Dates: start: 19980415, end: 19980415
  15. LIDOCAINE [Concomitant]
     Dosage: UNK
     Route: 042
     Dates: start: 19980415, end: 19980415
  16. TRASYLOL [Suspect]
     Dosage: 50CC/HR
     Route: 042
     Dates: start: 19980415, end: 19980415
  17. FUROSEMIDE [Concomitant]
     Dosage: 40 MG/24HR, UNK
     Route: 048
  18. FENTANYL [Concomitant]
     Dosage: UNK
     Route: 042
     Dates: start: 19980415
  19. IBUPROFEN [Concomitant]
     Dosage: 800 MG, TID
     Route: 048
     Dates: start: 19960216
  20. NORVASC [Concomitant]
     Dosage: 5 MG/24HR, UNK
     Route: 048
     Dates: start: 20010121
  21. FORANE [Concomitant]
     Dosage: INHALED
     Dates: start: 19980415, end: 19980415

REACTIONS (10)
  - RENAL FAILURE [None]
  - ADVERSE EVENT [None]
  - DEATH [None]
  - FEAR [None]
  - PAIN [None]
  - INJURY [None]
  - ANXIETY [None]
  - UNEVALUABLE EVENT [None]
  - DEPRESSION [None]
  - ANHEDONIA [None]
